FAERS Safety Report 22029068 (Version 2)
Quarter: 2023Q1

REPORT INFORMATION
  Report Type: Spontaneous
  Country: US (occurrence: US)
  Receive Date: 20230223
  Receipt Date: 20230315
  Transmission Date: 20230417
  Serious: Yes (Hospitalization)
  Sender: FDA-Public Use
  Company Number: US-MEDEXUS PHARMA, INC.-2023MED00056

PATIENT
  Sex: Female
  Weight: 99.773 kg

DRUGS (3)
  1. RASUVO [Suspect]
     Active Substance: METHOTREXATE SODIUM
     Indication: Rheumatoid arthritis
     Dosage: 20 OR 25 MG, 1X/WEEK IN HER THIGH ABOVE THE KNEE
     Dates: end: 202205
  2. RASUVO [Suspect]
     Active Substance: METHOTREXATE SODIUM
     Dosage: 20 OR 25 MG, 1X/WEEK IN HER THIGH ABOVE THE KNEE
     Dates: start: 202207
  3. UNSPECIFIED INGREDIENT [Concomitant]
     Active Substance: UNSPECIFIED INGREDIENT

REACTIONS (3)
  - Diverticulitis [Recovered/Resolved]
  - Large intestine perforation [Recovering/Resolving]
  - SARS-CoV-2 test positive [Recovered/Resolved]
